FAERS Safety Report 19932594 (Version 1)
Quarter: 2021Q4

REPORT INFORMATION
  Report Type: Spontaneous
  Country: CA (occurrence: CA)
  Receive Date: 20211008
  Receipt Date: 20211008
  Transmission Date: 20220303
  Serious: Yes (Life-Threatening, Hospitalization, Other)
  Sender: FDA-Public Use
  Company Number: CA-TEVA-2021-CA-1962226

PATIENT
  Age: 17 Year
  Sex: Female
  Weight: 52 kg

DRUGS (1)
  1. SULFAMETHOXAZOLE\TRIMETHOPRIM [Suspect]
     Active Substance: SULFAMETHOXAZOLE\TRIMETHOPRIM
     Indication: Cellulitis staphylococcal
     Route: 048

REACTIONS (5)
  - Endotracheal intubation [Unknown]
  - Mechanical ventilation [Unknown]
  - Septic shock [Unknown]
  - Toxic epidermal necrolysis [Unknown]
  - Tracheostomy [Unknown]
